FAERS Safety Report 6157799-6 (Version None)
Quarter: 2009Q2

REPORT INFORMATION
  Report Type: 
  Country: None (occurrence: None)
  Receive Date: 20090414
  Receipt Date: 20090402
  Transmission Date: 20091009
  Serious: No
  Sender: FDA-Public Use
  Company Number: 20085885

PATIENT
  Age: 48 Year
  Sex: Male

DRUGS (6)
  1. LIORESAL [Suspect]
     Indication: MUSCLE SPASTICITY
     Dosage: MCG, DAILY, INTRATHECAL
     Route: 037
  2. HIGH DOSE OPIATES [Concomitant]
  3. FENTANYL TRANSDERMAL SYSTEM [Concomitant]
  4. LONG ACTING DEXADRINE [Concomitant]
  5. LYRICA [Concomitant]
  6. CYMBALTA [Concomitant]

REACTIONS (17)
  - ACTINOMYCOSIS [None]
  - ASTERIXIS [None]
  - BACK PAIN [None]
  - CONDITION AGGRAVATED [None]
  - DIPLOPIA [None]
  - HYPOGEUSIA [None]
  - HYPOSMIA [None]
  - INITIAL INSOMNIA [None]
  - MULTIPLE DRUG OVERDOSE [None]
  - MUSCLE SPASTICITY [None]
  - MYOCLONUS [None]
  - ORAL DISCHARGE [None]
  - PURULENCE [None]
  - SINUS DISORDER [None]
  - SLEEP APNOEA SYNDROME [None]
  - SOMNOLENCE [None]
  - WEIGHT DECREASED [None]
